FAERS Safety Report 9728077 (Version 3)
Quarter: 2013Q4

REPORT INFORMATION
  Report Type: Report from Study
  Country: KR (occurrence: KR)
  Receive Date: 20131204
  Receipt Date: 20131226
  Transmission Date: 20140711
  Serious: No
  Sender: FDA-Public Use
  Company Number: PHHY2013KR138725

PATIENT
  Age: 56 Year
  Sex: Female

DRUGS (3)
  1. AMN107 [Suspect]
     Indication: CHRONIC MYELOID LEUKAEMIA
     Dosage: 600 MG, PER DAY
     Route: 048
     Dates: start: 20120913
  2. BARACLUDE [Concomitant]
     Indication: HEPATITIS B
     Dosage: 0.5 MG, UNK
     Route: 048
     Dates: start: 20130514
  3. ORAMEDY [Concomitant]
     Indication: LIP ULCERATION
     Route: 050
     Dates: start: 20130402, end: 20130402

REACTIONS (1)
  - Insomnia [Recovered/Resolved]
